FAERS Safety Report 18358843 (Version 3)
Quarter: 2025Q3

REPORT INFORMATION
  Report Type: Spontaneous
  Country: EU (occurrence: EU)
  Receive Date: 20201008
  Receipt Date: 20250826
  Transmission Date: 20251021
  Serious: Yes (Hospitalization, Other)
  Sender: AUROBINDO
  Company Number: EU-LUNDBECK-DKLU3021564

PATIENT
  Age: 47 Year
  Sex: Male

DRUGS (5)
  1. VENLAFAXINE [Suspect]
     Active Substance: VENLAFAXINE HYDROCHLORIDE
     Indication: Mental disorder
     Route: 065
  2. VENLAFAXINE [Suspect]
     Active Substance: VENLAFAXINE HYDROCHLORIDE
     Route: 065
  3. CITALOPRAM [Suspect]
     Active Substance: CITALOPRAM
     Indication: Mental disorder
     Route: 065
  4. CITALOPRAM [Suspect]
     Active Substance: CITALOPRAM
     Route: 065
  5. AMPHETAMINE [Concomitant]
     Active Substance: AMPHETAMINE
     Indication: Product used for unknown indication

REACTIONS (7)
  - Respiratory failure [Unknown]
  - Psychomotor hyperactivity [Unknown]
  - Bradypnoea [Unknown]
  - Mydriasis [Unknown]
  - Tremor [Unknown]
  - Tachycardia [Unknown]
  - Confusional state [Unknown]
